FAERS Safety Report 6038764-6 (Version None)
Quarter: 2009Q1

REPORT INFORMATION
  Report Type: 
  Country: None (occurrence: None)
  Receive Date: 20090115
  Receipt Date: 20080227
  Transmission Date: 20090719
  Serious: No
  Sender: FDA-Public Use
  Company Number: US-ABBOTT-08P-163-0440126-00

PATIENT
  Sex: Female
  Weight: 52.664 kg

DRUGS (3)
  1. ADVICOR [Suspect]
     Indication: HIGH DENSITY LIPOPROTEIN DECREASED
     Route: 048
     Dates: start: 20061001
  2. ADVICOR [Suspect]
     Indication: LOW DENSITY LIPOPROTEIN INCREASED
  3. BIRTH CONTROL [Concomitant]
     Indication: CONTRACEPTION
     Route: 048
     Dates: start: 20060801

REACTIONS (4)
  - CYST [None]
  - NODULE ON EXTREMITY [None]
  - OVARIAN CYST [None]
  - PAIN IN EXTREMITY [None]
